FAERS Safety Report 5226609-3 (Version None)
Quarter: 2007Q1

REPORT INFORMATION
  Report Type: 
  Country: None (occurrence: None)
  Receive Date: 20070201
  Receipt Date: 20070123
  Transmission Date: 20070707
  Serious: Yes (Other)
  Sender: FDA-Public Use
  Company Number: FR-PFIZER INC-2007006818

PATIENT
  Age: 29 Year
  Sex: Female

DRUGS (3)
  1. LYRICA [Suspect]
     Indication: NEURALGIA
  2. TEGRETOL [Concomitant]
  3. AMITRIPTYLINE HCL [Concomitant]

REACTIONS (4)
  - AGEUSIA [None]
  - APHASIA [None]
  - BALANCE DISORDER [None]
  - HEADACHE [None]
